FAERS Safety Report 21459058 (Version 2)
Quarter: 2025Q1

REPORT INFORMATION
  Report Type: Spontaneous
  Country: US (occurrence: US)
  Receive Date: 20221014
  Receipt Date: 20250206
  Transmission Date: 20250409
  Serious: No
  Sender: SANOFI AVENTIS
  Company Number: US-SA-SAC20221011000150

PATIENT
  Age: 12 Year
  Sex: Female

DRUGS (10)
  1. DUPIXENT [Suspect]
     Active Substance: DUPILUMAB
     Indication: Dermatitis atopic
     Route: 058
     Dates: start: 20221012, end: 20221012
  2. DUPIXENT [Suspect]
     Active Substance: DUPILUMAB
     Dosage: 200 MG, QOW
     Route: 058
     Dates: start: 2022
  3. EUCRISA [Concomitant]
     Active Substance: CRISABOROLE
  4. PIMECROLIMUS [Concomitant]
     Active Substance: PIMECROLIMUS
  5. TRIAMCINOLONE ACETONIDE [Concomitant]
     Active Substance: TRIAMCINOLONE ACETONIDE
  6. SELENIUM [Concomitant]
     Active Substance: SELENIUM
  7. ERYTHROMYCIN [Concomitant]
     Active Substance: ERYTHROMYCIN
  8. EPINEPHRINE [Concomitant]
     Active Substance: EPINEPHRINE
  9. PIMECROLIMUS [Concomitant]
     Active Substance: PIMECROLIMUS
  10. LIDOCAINE AND PRILOCAINE [Concomitant]
     Active Substance: LIDOCAINE\PRILOCAINE

REACTIONS (5)
  - Discomfort [Not Recovered/Not Resolved]
  - Insomnia [Unknown]
  - Rash [Not Recovered/Not Resolved]
  - Sleep disorder due to a general medical condition [Not Recovered/Not Resolved]
  - Erythema [Not Recovered/Not Resolved]

NARRATIVE: CASE EVENT DATE: 20241201
